FAERS Safety Report 16463175 (Version 3)
Quarter: 2019Q3

REPORT INFORMATION
  Report Type: Spontaneous
  Country: US (occurrence: US)
  Receive Date: 20190621
  Receipt Date: 20190807
  Transmission Date: 20191004
  Serious: No
  Sender: FDA-Public Use
  Company Number: US-PFIZER INC-2019265758

PATIENT
  Age: 87 Year
  Sex: Female

DRUGS (1)
  1. XELJANZ [Suspect]
     Active Substance: TOFACITINIB CITRATE
     Indication: RHEUMATOID ARTHRITIS
     Dosage: 5 MG, DAILY
     Route: 048
     Dates: start: 201812

REACTIONS (5)
  - Cough [Unknown]
  - Appetite disorder [Unknown]
  - Chills [Unknown]
  - Condition aggravated [Recovering/Resolving]
  - Malaise [Unknown]
